FAERS Safety Report 8422207-9 (Version None)
Quarter: 2012Q2

REPORT INFORMATION
  Report Type: 
  Country: None (occurrence: None)
  Receive Date: 20120608
  Receipt Date: 20120604
  Transmission Date: 20120825
  Serious: Yes (Death, Other)
  Sender: FDA-Public Use
  Company Number: FR-ASTRAZENECA-2012SE33580

PATIENT
  Age: 55 Year
  Sex: Male

DRUGS (14)
  1. FENOFIBRATE [Suspect]
     Route: 048
  2. OLANZAPINE [Suspect]
     Route: 048
     Dates: start: 20120417
  3. TRIMEPRAZINE TARTRATE [Suspect]
     Route: 048
  4. LERCANIDIPINE [Suspect]
     Route: 048
  5. GLYBURIDE [Suspect]
     Route: 048
  6. QUETIAPINE FUMARATE [Suspect]
     Indication: SCHIZOPHRENIA
     Route: 048
     Dates: start: 20120416, end: 20120416
  7. NEXIUM [Suspect]
     Route: 048
  8. ALFUZOSIN HCL [Suspect]
     Route: 048
  9. ZOLPIDEM ARROW [Suspect]
     Route: 048
  10. VALSARTAN  AND HYDROCHLOROTHIAZIDE [Suspect]
     Route: 048
  11. OLANZAPINE [Suspect]
     Route: 048
     Dates: end: 20120415
  12. ALPRAZOLAM [Suspect]
     Route: 048
  13. VENLAFAXINE [Suspect]
     Route: 048
  14. GLUCOPHAGE [Suspect]
     Route: 048

REACTIONS (2)
  - VOMITING [None]
  - CARDIAC ARREST [None]
